FAERS Safety Report 4489659-0 (Version None)
Quarter: 2004Q4

REPORT INFORMATION
  Report Type: 
  Country: None (occurrence: None)
  Receive Date: 20041101
  Receipt Date: 20041019
  Transmission Date: 20050328
  Serious: Yes (Other)
  Sender: FDA-Public Use
  Company Number: PHBS2004JP14015

PATIENT
  Age: 45 Year
  Sex: Female
  Weight: 46 kg

DRUGS (6)
  1. SANDIMMUNE [Suspect]
     Dosage: 140 MG/D
     Dates: start: 20041013
  2. ZOVIRAX [Concomitant]
     Dosage: 1000 MG/D
     Route: 048
     Dates: start: 20041007, end: 20041012
  3. ZOVIRAX [Concomitant]
     Dosage: 750 MG/D
     Route: 042
     Dates: start: 20041013
  4. DIFLUCAN [Concomitant]
     Dosage: 200 MG/D
     Route: 048
     Dates: start: 20041004, end: 20041010
  5. PRODIF [Concomitant]
     Dosage: 200 MG/D
     Route: 042
     Dates: start: 20041015
  6. CRAVIT [Concomitant]
     Dosage: 300 MG/D
     Route: 048
     Dates: start: 20041004, end: 20041010

REACTIONS (4)
  - BLOOD CULTURE POSITIVE [None]
  - NEUTROPENIA [None]
  - PYREXIA [None]
  - STAPHYLOCOCCAL SEPSIS [None]
